FAERS Safety Report 6846223-3 (Version None)
Quarter: 2010Q3

REPORT INFORMATION
  Report Type: 
  Country: None (occurrence: None)
  Receive Date: 20100715
  Receipt Date: 20070913
  Transmission Date: 20110219
  Serious: No
  Sender: FDA-Public Use
  Company Number: US-PFIZER INC-2007076737

PATIENT
  Sex: Female

DRUGS (9)
  1. CHANTIX [Suspect]
     Indication: SMOKING CESSATION THERAPY
     Route: 048
     Dates: start: 20070801
  2. LORAZEPAM [Concomitant]
     Route: 048
  3. TRAZODONE HYDROCHLORIDE [Concomitant]
     Indication: MENTAL DISORDER
     Route: 048
  4. LAMICTAL [Concomitant]
     Route: 048
  5. LEXAPRO [Concomitant]
     Route: 048
  6. ZOCOR [Concomitant]
     Indication: ARTERIAL OCCLUSIVE DISEASE
     Route: 048
  7. ABILIFY [Concomitant]
     Route: 048
  8. PEPCID [Concomitant]
     Route: 048
  9. WELLBUTRIN [Concomitant]
     Route: 048

REACTIONS (2)
  - TREMOR [None]
  - VOMITING [None]
